FAERS Safety Report 9668774 (Version 1)
Quarter: 2013Q4

REPORT INFORMATION
  Report Type: Spontaneous
  Country: FR (occurrence: FR)
  Receive Date: 20131105
  Receipt Date: 20131105
  Transmission Date: 20140711
  Serious: Yes (Hospitalization)
  Sender: FDA-Public Use
  Company Number: FR-AMGEN-FRASP2013077113

PATIENT
  Age: 53 Year
  Sex: Male

DRUGS (9)
  1. XGEVA [Suspect]
     Indication: METASTASES TO BONE
     Dosage: 120 MG, ONE DOSAGE FORM (ONE IN ONE INTAKE)
     Route: 058
     Dates: start: 20130726
  2. ASPEGIC                            /00002703/ [Concomitant]
     Dosage: UNK
     Dates: start: 20130721
  3. FRAGMINE [Concomitant]
     Dosage: UNK
     Dates: start: 20130721
  4. INEXIUM                            /01479302/ [Concomitant]
  5. DEBRIDAT                           /00465201/ [Concomitant]
  6. SPASFON /00765801/ [Concomitant]
  7. ACUPAN [Concomitant]
  8. PLITICAN [Concomitant]
  9. PARACETAMOL [Concomitant]

REACTIONS (3)
  - Disturbance in attention [Recovered/Resolved]
  - Myoclonus [Recovered/Resolved]
  - Hypocalcaemia [Not Recovered/Not Resolved]
